FAERS Safety Report 18940056 (Version 1)
Quarter: 2021Q1

REPORT INFORMATION
  Report Type: Spontaneous
  Country: US (occurrence: US)
  Receive Date: 20210224
  Receipt Date: 20210224
  Transmission Date: 20210420
  Serious: No
  Sender: FDA-Public Use
  Company Number: US-INTERNATIONAL MEDICATION SYSTEMS, LIMITED-2107304

PATIENT
  Age: 55 Year
  Sex: Female
  Weight: 79.55 kg

DRUGS (21)
  1. WARFARIN [Concomitant]
     Active Substance: WARFARIN
  2. GABAPENTIN. [Concomitant]
     Active Substance: GABAPENTIN
  3. BOSENTAN. [Concomitant]
     Active Substance: BOSENTAN
     Route: 048
     Dates: start: 20190716
  4. BUSPIRONE [Concomitant]
     Active Substance: BUSPIRONE HYDROCHLORIDE
  5. POTASSIUM [Concomitant]
     Active Substance: POTASSIUM
  6. TADALAFIL. [Concomitant]
     Active Substance: TADALAFIL
  7. TRACLEER [Concomitant]
     Active Substance: BOSENTAN
     Route: 048
     Dates: start: 2001, end: 20190716
  8. ESOMEPRAZOLE. [Concomitant]
     Active Substance: ESOMEPRAZOLE MAGNESIUM
  9. HYDROCODONE [Concomitant]
     Active Substance: HYDROCODONE
  10. WARFARIN [Concomitant]
     Active Substance: WARFARIN
  11. ATORVASTATIN [Concomitant]
     Active Substance: ATORVASTATIN
  12. ZOLPIDEM [Concomitant]
     Active Substance: ZOLPIDEM TARTRATE
  13. CYCLOBENZAPRINE. [Concomitant]
     Active Substance: CYCLOBENZAPRINE
  14. METOPROLOL. [Concomitant]
     Active Substance: METOPROLOL
  15. ADCIRCA [Concomitant]
     Active Substance: TADALAFIL
  16. MAGNESIUM [Concomitant]
     Active Substance: MAGNESIUM
  17. ENTRESTO [Concomitant]
     Active Substance: SACUBITRIL\VALSARTAN
  18. LORAZEPAM. [Concomitant]
     Active Substance: LORAZEPAM
  19. METOPROLOL. [Concomitant]
     Active Substance: METOPROLOL
  20. FUROSEMIDE. [Suspect]
     Active Substance: FUROSEMIDE
     Indication: PERIPHERAL SWELLING
     Route: 048
     Dates: end: 202005
  21. SOLIFENACIN [Concomitant]
     Active Substance: SOLIFENACIN

REACTIONS (1)
  - Hypotension [Recovering/Resolving]

NARRATIVE: CASE EVENT DATE: 202004
